FAERS Safety Report 18333358 (Version 1)
Quarter: 2020Q4

REPORT INFORMATION
  Report Type: Spontaneous
  Country: US (occurrence: US)
  Receive Date: 20201001
  Receipt Date: 20201001
  Transmission Date: 20210113
  Serious: Yes (Life-Threatening, Hospitalization, Other)
  Sender: FDA-Public Use
  Company Number: US-JNJFOC-20200939120

PATIENT
  Age: 46 Year
  Sex: Male
  Weight: 84 kg

DRUGS (2)
  1. DEXTROMETHORPHAN [Concomitant]
     Active Substance: DEXTROMETHORPHAN
     Indication: PRODUCT USED FOR UNKNOWN INDICATION
     Dosage: UNKNOWN QUANTITY
     Route: 048
  2. PARACETAMOL [Suspect]
     Active Substance: ACETAMINOPHEN
     Indication: PRODUCT USED FOR UNKNOWN INDICATION
     Dosage: TWO HUNDRED FIFTY 500-MG PILLS WITH INACTIVE PROPYLENE GLYCOL AS AN INGREDIENT; IN TOTAL?OVERDOSE,
     Route: 048

REACTIONS (11)
  - Hyperglycaemia [Recovered/Resolved]
  - Acute kidney injury [Recovered/Resolved]
  - Intentional overdose [Recovered/Resolved]
  - Depressed level of consciousness [Recovered/Resolved]
  - Coagulopathy [Recovered/Resolved]
  - Polyuria [Recovered/Resolved]
  - Renal tubular dysfunction [Recovered/Resolved]
  - Hypotension [Recovered/Resolved]
  - Liver injury [Recovered/Resolved]
  - Lactic acidosis [Recovered/Resolved]
  - Metabolic acidosis [Recovered/Resolved]
